FAERS Safety Report 13167970 (Version 3)
Quarter: 2018Q3

REPORT INFORMATION
  Report Type: Spontaneous
  Country: US (occurrence: US)
  Receive Date: 20170131
  Receipt Date: 20180803
  Transmission Date: 20181010
  Serious: Yes (Other)
  Sender: FDA-Public Use
  Company Number: US-PFIZER INC-2017040394

PATIENT
  Age: 33 Year
  Sex: Female
  Weight: 129.2 kg

DRUGS (2)
  1. PHENYTOIN SODIUM. [Suspect]
     Active Substance: PHENYTOIN SODIUM
     Indication: EPILEPSY
     Dosage: 300 MG, 1X/DAY
     Route: 048
  2. TYLENOL [Concomitant]
     Active Substance: ACETAMINOPHEN
     Dosage: UNK UNK, DAILY

REACTIONS (4)
  - Transient ischaemic attack [Recovered/Resolved]
  - Product substitution issue [Recovered/Resolved]
  - Partial seizures [Recovered/Resolved]
  - Hypoaesthesia [Recovered/Resolved]
